FAERS Safety Report 8851088 (Version 2)
Quarter: 2012Q4

REPORT INFORMATION
  Report Type: 
  Country: US (occurrence: US)
  Receive Date: 20121019
  Receipt Date: 20121116
  Transmission Date: 20130627
  Serious: Yes (Disabling, Other)
  Sender: FDA-Public Use
  Company Number: US-BAYER-2011-042797

PATIENT
  Age: 74 Year
  Sex: Female
  Weight: 178 kg

DRUGS (16)
  1. NEXAVAR [Suspect]
     Indication: THYROID CANCER
     Dosage: 400 mg, QD
     Dates: start: 20110402
  2. NEXAVAR [Suspect]
     Indication: THYROID CANCER
     Dosage: 400 mg, BID
     Dates: start: 201105
  3. NEXAVAR [Suspect]
     Indication: THYROID CANCER
     Dosage: 400 mg, QD
  4. NEXAVAR [Suspect]
     Indication: THYROID CANCER
     Dosage: 400 mg Q am and 200 mg Q pm
     Dates: end: 20120911
  5. NEXAVAR [Suspect]
     Indication: THYROID CANCER
     Dosage: 400 mg, QD
     Dates: start: 20120916
  6. NEXAVAR [Suspect]
     Indication: THYROID CANCER
     Dosage: 200 mg, BID
     Dates: end: 20121030
  7. PREDNISONE [Concomitant]
     Indication: LUPUS ERYTHEMATOSUS
  8. MULTIVITAMIN [Concomitant]
  9. ASA [Concomitant]
  10. MAG [Concomitant]
  11. ACTONEL [Concomitant]
  12. SYNTHROID [Concomitant]
  13. KCL [Concomitant]
  14. CALCIUM VIT D [Concomitant]
  15. NEURONTIN [Concomitant]
  16. PLAQUENIL [Concomitant]

REACTIONS (22)
  - Weight decreased [Not Recovered/Not Resolved]
  - Palmar-plantar erythrodysaesthesia syndrome [None]
  - Erythema [None]
  - Pain in extremity [None]
  - Asthenia [Not Recovered/Not Resolved]
  - Eating disorder [Not Recovered/Not Resolved]
  - Erythema [Not Recovered/Not Resolved]
  - Pain in extremity [Not Recovered/Not Resolved]
  - Rash [Not Recovered/Not Resolved]
  - Diarrhoea [Recovered/Resolved]
  - Nausea [Not Recovered/Not Resolved]
  - Fatigue [Not Recovered/Not Resolved]
  - Decreased appetite [Not Recovered/Not Resolved]
  - Rash generalised [Not Recovered/Not Resolved]
  - Thyroglobulin decreased [None]
  - Skin injury [Not Recovered/Not Resolved]
  - Pain in extremity [Not Recovered/Not Resolved]
  - Diarrhoea [Not Recovered/Not Resolved]
  - Off label use [None]
  - Hyperkeratosis [Recovering/Resolving]
  - Weight decreased [Recovering/Resolving]
  - Blister [Recovering/Resolving]
